FAERS Safety Report 7153328-9 (Version None)
Quarter: 2010Q4

REPORT INFORMATION
  Report Type: 
  Country: None (occurrence: None)
  Receive Date: 20101213
  Receipt Date: 20101208
  Transmission Date: 20110411
  Serious: Yes (Death)
  Sender: FDA-Public Use
  Company Number: US-ELI_LILLY_AND_COMPANY-US201011000783

PATIENT
  Sex: Male
  Weight: 136.5 kg

DRUGS (8)
  1. PRASUGREL HYDROCHLORIDE [Suspect]
     Indication: ACUTE CORONARY SYNDROME
     Dosage: 60 MG, ONCE
     Dates: start: 20101011
  2. PRASUGREL HYDROCHLORIDE [Suspect]
     Dosage: 10 MG, DAILY (1/D)
     Dates: start: 20101012, end: 20101015
  3. ASPIRIN [Concomitant]
     Indication: ANTIPLATELET THERAPY
     Dosage: 325 MG, DAILY (1/D)
     Route: 048
     Dates: start: 20101008
  4. LOPRESSOR [Concomitant]
     Indication: HYPERTENSION
     Dosage: 5 MG, DAILY (1/D)
     Route: 048
     Dates: start: 20101011
  5. LISINOPRIL [Concomitant]
     Indication: HYPERTENSION
     Dosage: 5 MG, DAILY (1/D)
     Route: 048
     Dates: start: 20101012
  6. ZOCOR [Concomitant]
     Indication: HYPERLIPIDAEMIA
     Dosage: 80 MG, DAILY (1/D)
     Route: 048
     Dates: start: 20101011
  7. HEPARIN [Concomitant]
     Indication: ANTICOAGULANT THERAPY
     Dosage: 8000 U, OTHER
     Route: 042
     Dates: start: 20101011, end: 20101011
  8. INTEGRIN [Concomitant]
     Indication: ANTICOAGULANT THERAPY
     Dosage: 742.6 ML, OTHER
     Route: 042
     Dates: start: 20101009, end: 20101011

REACTIONS (1)
  - CARDIAC ARREST [None]
